FAERS Safety Report 7551682-7 (Version None)
Quarter: 2011Q2

REPORT INFORMATION
  Report Type: 
  Country: None (occurrence: None)
  Receive Date: 20110616
  Receipt Date: 20110602
  Transmission Date: 20111010
  Serious: Yes (Death)
  Sender: FDA-Public Use
  Company Number: GB-GENENTECH-315617

PATIENT
  Sex: Male

DRUGS (8)
  1. DOXAZOSIN MESYLATE [Concomitant]
     Indication: PRODUCT USED FOR UNKNOWN INDICATION
  2. LISINOPRIL [Concomitant]
     Indication: HYPERTENSION
  3. LUCENTIS [Suspect]
     Dosage: 0.05 ML, UNK
     Route: 031
     Dates: start: 20110303
  4. RANITIDINE [Concomitant]
     Indication: PRODUCT USED FOR UNKNOWN INDICATION
  5. LUCENTIS [Suspect]
     Indication: RETINAL VEIN OCCLUSION
     Dosage: 0.05 ML, UNKNOWN
     Route: 031
     Dates: start: 20110203
  6. ASPIRIN [Concomitant]
     Indication: PRODUCT USED FOR UNKNOWN INDICATION
  7. FUROSEMIDE [Concomitant]
     Indication: CARDIAC FAILURE
  8. TEMAZEPAM [Concomitant]
     Indication: PRODUCT USED FOR UNKNOWN INDICATION

REACTIONS (2)
  - PANCREATITIS [None]
  - INTESTINAL INFARCTION [None]
